FAERS Safety Report 20983890 (Version 2)
Quarter: 2022Q2

REPORT INFORMATION
  Report Type: Spontaneous
  Country: US (occurrence: US)
  Receive Date: 20220621
  Receipt Date: 20220627
  Transmission Date: 20220720
  Serious: Yes (Hospitalization, Other)
  Sender: FDA-Public Use
  Company Number: US-drreddys-LIT/USA/22/0151358

PATIENT
  Age: 60 Year
  Sex: Male

DRUGS (1)
  1. SIROLIMUS [Suspect]
     Active Substance: SIROLIMUS
     Indication: Product used for unknown indication

REACTIONS (5)
  - Posterior reversible encephalopathy syndrome [Unknown]
  - Haemorrhage [Unknown]
  - Condition aggravated [Unknown]
  - Brain stem infarction [Unknown]
  - Cardiovascular disorder [Unknown]
